FAERS Safety Report 4745853-2 (Version None)
Quarter: 2005Q3

REPORT INFORMATION
  Report Type: 
  Country: None (occurrence: None)
  Receive Date: 20050815
  Receipt Date: 20050815
  Transmission Date: 20060218
  Serious: Yes (Life-Threatening)
  Sender: FDA-Public Use
  Company Number: None

PATIENT
  Sex: Female
  Weight: 70.3075 kg

DRUGS (1)
  1. ZONEGRAN [Suspect]
     Indication: CONVULSION
     Dosage: 300 MG   EVERY NIGHT  ORAL
     Route: 048

REACTIONS (6)
  - BLOOD POTASSIUM DECREASED [None]
  - CONVULSION [None]
  - FEELING ABNORMAL [None]
  - IMPAIRED WORK ABILITY [None]
  - LOSS OF CONSCIOUSNESS [None]
  - PHARMACEUTICAL PRODUCT COMPLAINT [None]
